FAERS Safety Report 10331221 (Version 2)
Quarter: 2014Q3

REPORT INFORMATION
  Report Type: Spontaneous
  Country: JP (occurrence: JP)
  Receive Date: 20140722
  Receipt Date: 20140722
  Transmission Date: 20150326
  Serious: Yes (Other)
  Sender: FDA-Public Use
  Company Number: JP-ELI_LILLY_AND_COMPANY-JP_030701428

PATIENT
  Age: 82 Year
  Sex: Female
  Weight: 49 kg

DRUGS (6)
  1. BERIZYM [Concomitant]
     Active Substance: CELLULASE\DIASTASE\LIPASE
     Dosage: 3 UNK, DAILY (1/D)
     Route: 048
     Dates: start: 20010604
  2. LACTEC G [Concomitant]
     Dosage: 250 ML, OTHER
     Route: 042
     Dates: start: 20010604, end: 20011017
  3. GEMZAR [Suspect]
     Active Substance: GEMCITABINE HYDROCHLORIDE
     Indication: PANCREATIC CARCINOMA STAGE IV
     Dosage: 1200 MG, OTHER
     Route: 042
     Dates: start: 20010604, end: 20011017
  4. PURSENNID [Concomitant]
     Active Substance: SENNOSIDES A AND B CALCIUM
     Dosage: 2 UNK, DAILY (1/D)
     Route: 048
     Dates: start: 20010604
  5. ROXATIDINE ACETATE HYDROCHLORIDE [Concomitant]
     Active Substance: ROXATIDINE ACETATE HYDROCHLORIDE
     Dosage: 150 MG, DAILY (1/D)
     Route: 048
     Dates: start: 20010604
  6. KYTRIL - FOR INFUSION [Concomitant]
     Dosage: 1 DF, OTHER
     Route: 042
     Dates: start: 20010604, end: 20011017

REACTIONS (3)
  - Cardiac failure [Recovered/Resolved]
  - Neoplasm progression [Not Recovered/Not Resolved]
  - Anaemia [Recovered/Resolved]

NARRATIVE: CASE EVENT DATE: 20011003
